FAERS Safety Report 15379964 (Version 1)
Quarter: 2018Q3

REPORT INFORMATION
  Report Type: Spontaneous
  Country: US (occurrence: US)
  Receive Date: 20180913
  Receipt Date: 20180913
  Transmission Date: 20181010
  Serious: No
  Sender: FDA-Public Use
  Company Number: US-ASTELLAS-2018US015965

PATIENT
  Age: 80 Year
  Sex: Male

DRUGS (4)
  1. XTANDI [Suspect]
     Active Substance: ENZALUTAMIDE
     Route: 048
  2. XTANDI [Suspect]
     Active Substance: ENZALUTAMIDE
     Route: 048
     Dates: start: 20180306, end: 20180311
  3. XTANDI [Suspect]
     Active Substance: ENZALUTAMIDE
     Indication: PROSTATE CANCER
     Route: 048
     Dates: start: 201802
  4. XTANDI [Suspect]
     Active Substance: ENZALUTAMIDE
     Route: 048
     Dates: start: 20180404

REACTIONS (18)
  - Burning sensation [Unknown]
  - Myalgia [Recovering/Resolving]
  - Prostatic specific antigen abnormal [Unknown]
  - Neuropathy peripheral [Not Recovered/Not Resolved]
  - Feeding disorder [Recovering/Resolving]
  - Muscular weakness [Recovering/Resolving]
  - Asthenia [Recovering/Resolving]
  - Pallor [Unknown]
  - Vomiting [Recovering/Resolving]
  - Circumstance or information capable of leading to medication error [Unknown]
  - Product physical issue [Unknown]
  - Gait disturbance [Recovering/Resolving]
  - Hypoaesthesia [Unknown]
  - Peripheral coldness [Unknown]
  - Decreased appetite [Not Recovered/Not Resolved]
  - Pruritus [Unknown]
  - Diarrhoea [Recovering/Resolving]
  - Nausea [Recovering/Resolving]

NARRATIVE: CASE EVENT DATE: 201803
